FAERS Safety Report 4953235-3 (Version None)
Quarter: 2006Q1

REPORT INFORMATION
  Report Type: 
  Country: None (occurrence: None)
  Receive Date: 20060324
  Receipt Date: 20050928
  Transmission Date: 20060701
  Serious: Yes (Hospitalization)
  Sender: FDA-Public Use
  Company Number: US-MERCK-0509USA04386

PATIENT
  Age: 59 Year
  Sex: Female

DRUGS (1)
  1. VIOXX [Suspect]
     Route: 048
     Dates: start: 20001201, end: 20030101

REACTIONS (10)
  - ADVERSE EVENT [None]
  - ANAEMIA [None]
  - BONE LESION [None]
  - CEREBROVASCULAR ACCIDENT [None]
  - EOSINOPHILIA [None]
  - ESCHERICHIA SEPSIS [None]
  - HYPERCALCAEMIA [None]
  - PROTEINURIA [None]
  - PSEUDOCYST [None]
  - WEIGHT DECREASED [None]
